FAERS Safety Report 7348063-8 (Version None)
Quarter: 2011Q1

REPORT INFORMATION
  Report Type: 
  Country: None (occurrence: None)
  Receive Date: 20110311
  Receipt Date: 20110309
  Transmission Date: 20110831
  Serious: Yes (Other)
  Sender: FDA-Public Use
  Company Number: US-ABBOTT-11P-163-0710424-00

PATIENT
  Sex: Female
  Weight: 63.56 kg

DRUGS (8)
  1. HUMIRA [Suspect]
     Indication: RHEUMATOID ARTHRITIS
     Dates: start: 20101202, end: 20101215
  2. PRENATAL VITAMINS [Concomitant]
     Indication: PRODUCT USED FOR UNKNOWN INDICATION
     Dosage: PILL
     Route: 048
     Dates: start: 20110102, end: 20110219
  3. PERCOCET [Concomitant]
     Indication: PAIN
     Dates: start: 20110305, end: 20110305
  4. FOLIC ACID [Concomitant]
     Indication: PRODUCT USED FOR UNKNOWN INDICATION
     Route: 048
     Dates: start: 20110214, end: 20110219
  5. COFFEE [Concomitant]
     Indication: PRODUCT USED FOR UNKNOWN INDICATION
     Dosage: 1 SERVING
     Route: 048
     Dates: start: 20101202, end: 20110101
  6. FLU VACCINE [Concomitant]
     Indication: INFLUENZA
     Route: 050
     Dates: start: 20101203, end: 20101203
  7. LAMISIL [Concomitant]
     Indication: TINEA PEDIS
     Route: 048
     Dates: start: 20101202, end: 20101225
  8. MISOPROSTOL [Concomitant]
     Indication: INDUCED LABOUR
     Dosage: PILL
     Route: 048
     Dates: start: 20110219, end: 20110219

REACTIONS (6)
  - AMNIORRHOEA [None]
  - UTERINE CONTRACTIONS ABNORMAL [None]
  - THROMBOSIS [None]
  - HAEMORRHAGE [None]
  - INTRA-UTERINE DEATH [None]
  - CERVICAL DISCHARGE [None]
